FAERS Safety Report 5259430-0 (Version None)
Quarter: 2007Q1

REPORT INFORMATION
  Report Type: 
  Country: None (occurrence: None)
  Receive Date: 20070308
  Receipt Date: 20070226
  Transmission Date: 20070707
  Serious: Yes (Other)
  Sender: FDA-Public Use
  Company Number: SE-ABBOTT-06P-150-0324663-00

PATIENT
  Sex: Female

DRUGS (1)
  1. HUMIRA [Suspect]
     Indication: RHEUMATOID ARTHRITIS
     Route: 058
     Dates: start: 20030521, end: 20041228

REACTIONS (7)
  - ANGIOEDEMA [None]
  - FLUSHING [None]
  - HYPOAESTHESIA [None]
  - MUSCULOSKELETAL DISORDER [None]
  - NASOPHARYNGEAL DISORDER [None]
  - PARAESTHESIA [None]
  - THROAT TIGHTNESS [None]
